FAERS Safety Report 12181289 (Version 2)
Quarter: 2016Q2

REPORT INFORMATION
  Report Type: Spontaneous
  Country: US (occurrence: US)
  Receive Date: 20160315
  Receipt Date: 20160617
  Transmission Date: 20160815
  Serious: No
  Sender: FDA-Public Use
  Company Number: US-ALLERGAN-1600920US

PATIENT
  Sex: Female
  Weight: 88.44 kg

DRUGS (1)
  1. VIBERZI [Suspect]
     Active Substance: ELUXADOLINE
     Indication: IRRITABLE BOWEL SYNDROME
     Dosage: 75 MG, QD
     Route: 048
     Dates: start: 20160105, end: 20160111

REACTIONS (3)
  - Inappropriate schedule of drug administration [Unknown]
  - Nausea [Unknown]
  - Abdominal pain [Unknown]
